FAERS Safety Report 19277178 (Version 2)
Quarter: 2021Q3

REPORT INFORMATION
  Report Type: Report from Study
  Country: US (occurrence: US)
  Receive Date: 20210520
  Receipt Date: 20210920
  Transmission Date: 20211014
  Serious: No
  Sender: FDA-Public Use
  Company Number: US-AMGEN-USA-20191201795

PATIENT
  Age: 66 Year
  Sex: Female

DRUGS (3)
  1. BENADRYL [Concomitant]
     Active Substance: DIPHENHYDRAMINE HYDROCHLORIDE
     Indication: PRURITUS
     Dosage: UNK
     Route: 065
  2. OTEZLA [Suspect]
     Active Substance: APREMILAST
     Indication: PSORIASIS
     Dosage: 30 MILLIGRAM, BID
     Route: 048
     Dates: start: 20190919
  3. COVID?19 VACCINE [Concomitant]
     Dosage: UNK

REACTIONS (7)
  - Nausea [Unknown]
  - Hyperhidrosis [Unknown]
  - Diarrhoea [Unknown]
  - Therapy non-responder [Unknown]
  - Depression [Unknown]
  - Sleep disorder due to general medical condition, insomnia type [Unknown]
  - COVID-19 [Unknown]

NARRATIVE: CASE EVENT DATE: 2019
